FAERS Safety Report 6666599-X (Version None)
Quarter: 2010Q2

REPORT INFORMATION
  Report Type: 
  Country: None (occurrence: None)
  Receive Date: 20100404
  Receipt Date: 20100329
  Transmission Date: 20101027
  Serious: Yes (Hospitalization)
  Sender: FDA-Public Use
  Company Number: US-BRISTOL-MYERS SQUIBB COMPANY-15029143

PATIENT
  Age: 17 Year
  Sex: Female

DRUGS (6)
  1. ABILIFY [Suspect]
     Indication: AGITATION
     Route: 048
     Dates: start: 20080416
  2. ABILIFY [Suspect]
     Indication: AFFECT LABILITY
     Route: 048
     Dates: start: 20080416
  3. CITALOPRAM HYDROBROMIDE [Suspect]
     Dosage: ON 24FEB10 INCREASED TO 20MG QAM.
     Dates: start: 20100217, end: 20100318
  4. ZOLPIDEM [Suspect]
     Indication: SLEEP DISORDER
     Dates: start: 20100104
  5. CONCERTA [Suspect]
     Dates: start: 20100217
  6. BENZATROPINE [Concomitant]
     Dosage: 1 DF = 1 MG. 2 TABS

REACTIONS (8)
  - BLOOD PRESSURE INCREASED [None]
  - BODY TEMPERATURE INCREASED [None]
  - CHROMATURIA [None]
  - DYSTONIA [None]
  - HEART RATE INCREASED [None]
  - LOSS OF CONSCIOUSNESS [None]
  - SYNCOPE [None]
  - URINE ODOUR ABNORMAL [None]
